FAERS Safety Report 17783774 (Version 1)
Quarter: 2020Q2

REPORT INFORMATION
  Report Type: Spontaneous
  Country: US (occurrence: US)
  Receive Date: 20200514
  Receipt Date: 20200514
  Transmission Date: 20200714
  Serious: Yes (Hospitalization)
  Sender: FDA-Public Use
  Company Number: US-PFIZER INC-2020192472

PATIENT
  Age: 49 Year
  Sex: Male

DRUGS (1)
  1. IBRANCE [Suspect]
     Active Substance: PALBOCICLIB
     Indication: SALIVARY GLAND CANCER
     Dosage: 125 MG, CYCLIC (1 DAILY FOR 21 DAYS)
     Route: 048

REACTIONS (3)
  - Product use in unapproved indication [Unknown]
  - Blood count abnormal [Unknown]
  - Off label use [Unknown]
